FAERS Safety Report 11690242 (Version 4)
Quarter: 2016Q1

REPORT INFORMATION
  Report Type: Report from Study
  Country: BR (occurrence: BR)
  Receive Date: 20151102
  Receipt Date: 20160224
  Transmission Date: 20160525
  Serious: Yes (Hospitalization)
  Sender: FDA-Public Use
  Company Number: BR-UCBSA-2015001105

PATIENT
  Age: 40 Year
  Sex: Female
  Weight: 65 kg

DRUGS (6)
  1. CERTOLIZUMAB PEGOL [Suspect]
     Active Substance: CERTOLIZUMAB PEGOL
     Indication: RHEUMATOID ARTHRITIS
     Dosage: 400 MG, EV 2 WEEKS(QOW)
     Dates: start: 201408
  2. METHOTREXATE [Concomitant]
     Active Substance: METHOTREXATE
     Dosage: 5 MG, WEEKLY (QW)
     Route: 048
     Dates: end: 201510
  3. PREDNISONE. [Concomitant]
     Active Substance: PREDNISONE
     Indication: PAIN
     Dosage: 5 MG, ONCE DAILY (QD)
     Route: 048
     Dates: start: 2008
  4. PREDNISONE. [Concomitant]
     Active Substance: PREDNISONE
     Dosage: 20 MG, ONCE DAILY (QD)
     Route: 048
  5. IBUPROFEN. [Concomitant]
     Active Substance: IBUPROFEN
     Indication: PAIN
     Dosage: 600 MG, AS NEEDED (PRN)
     Route: 048
  6. METHOTREXATE [Concomitant]
     Active Substance: METHOTREXATE
     Indication: RHEUMATOID ARTHRITIS
     Dosage: 2.5 MG, MONTHLY (QM)
     Route: 048
     Dates: start: 2008

REACTIONS (15)
  - Pain [Not Recovered/Not Resolved]
  - Urinary tract infection [Unknown]
  - Diarrhoea [Recovered/Resolved]
  - Fall [Recovered/Resolved]
  - Gait disturbance [Not Recovered/Not Resolved]
  - Drug dose omission [Unknown]
  - Vomiting [Recovered/Resolved]
  - Back pain [Recovered/Resolved]
  - Dysuria [Recovered/Resolved]
  - Vein rupture [Unknown]
  - Bone pain [Not Recovered/Not Resolved]
  - Paralysis [Recovered/Resolved]
  - Peripheral swelling [Unknown]
  - Limb injury [Unknown]
  - Pyrexia [Recovered/Resolved]

NARRATIVE: CASE EVENT DATE: 2014
